FAERS Safety Report 8215249-X (Version None)
Quarter: 2012Q1

REPORT INFORMATION
  Report Type: 
  Country: None (occurrence: None)
  Receive Date: 20120316
  Receipt Date: 20120306
  Transmission Date: 20120608
  Serious: Yes (Other)
  Sender: FDA-Public Use
  Company Number: IT-ELI_LILLY_AND_COMPANY-IT201203001477

PATIENT
  Sex: Female

DRUGS (4)
  1. FORTEO [Suspect]
     Dosage: UNK, UNKNOWN
     Route: 065
     Dates: start: 20110601
  2. CORTISONE ACETATE [Concomitant]
  3. ENOXAPARIN SODIUM [Concomitant]
     Indication: ANTICOAGULANT THERAPY
  4. FORTEO [Suspect]
     Dosage: UNK, UNKNOWN
     Route: 065

REACTIONS (3)
  - BONE PAIN [None]
  - ADVERSE EVENT [None]
  - BONE OPERATION [None]
